FAERS Safety Report 15852188 (Version 4)
Quarter: 2020Q2

REPORT INFORMATION
  Report Type: Spontaneous
  Country: PT (occurrence: PT)
  Receive Date: 20190122
  Receipt Date: 20200620
  Transmission Date: 20200713
  Serious: Yes (Hospitalization, Other)
  Sender: FDA-Public Use
  Company Number: PT-AUROBINDO-AUR-APL-2019-002482

PATIENT
  Age: 57 Year
  Sex: Male

DRUGS (9)
  1. ALPRAZOLAM. [Concomitant]
     Active Substance: ALPRAZOLAM
     Indication: PRODUCT USED FOR UNKNOWN INDICATION
     Dosage: 0.25 MILLIGRAM, ONCE A DAY
     Route: 048
     Dates: start: 20170721, end: 20170818
  2. ENOXAPARIN [Concomitant]
     Active Substance: ENOXAPARIN
     Indication: PRODUCT USED FOR UNKNOWN INDICATION
     Dosage: 40 MILLIGRAM, TOTAL
     Route: 058
  3. GENTAMICIN. [Concomitant]
     Active Substance: GENTAMICIN
     Indication: PRODUCT USED FOR UNKNOWN INDICATION
     Dosage: 240 MILLIGRAM, ONCE A DAY
     Route: 065
     Dates: start: 20170724, end: 20170817
  4. METAMIZOLE [Concomitant]
     Active Substance: METAMIZOLE
     Indication: PRODUCT USED FOR UNKNOWN INDICATION
     Dosage: 575 MILLIGRAM, 3 TIMES A DAY
     Route: 048
     Dates: start: 20170724, end: 20180818
  5. AMOXICILLIN+CLAVULANIC ACID [Suspect]
     Active Substance: AMOXICILLIN\CLAVULANIC ACID
     Indication: KLEBSIELLA INFECTION
     Dosage: 1200 MILLIGRAM, 3 TIMES A DAY
     Route: 042
     Dates: start: 20170717, end: 20170727
  6. CLARITHROMYCIN. [Suspect]
     Active Substance: CLARITHROMYCIN
     Indication: PNEUMONIA KLEBSIELLA
     Dosage: 500 MILLIGRAM, TWO TIMES A DAY
     Route: 048
     Dates: start: 20170718, end: 20170721
  7. ESOMEPRAZOLE. [Concomitant]
     Active Substance: ESOMEPRAZOLE MAGNESIUM
     Indication: PRODUCT USED FOR UNKNOWN INDICATION
     Dosage: 20 MILLIGRAM, UNK
     Route: 048
     Dates: start: 20170707, end: 20170719
  8. POTASSIUM CHLORIDE. [Concomitant]
     Active Substance: POTASSIUM CHLORIDE
     Indication: PRODUCT USED FOR UNKNOWN INDICATION
     Dosage: 40 MILLIGRAM, ONCE A DAY
     Route: 065
     Dates: start: 20170721, end: 20170724
  9. POTASSIUM CHLORIDE. [Concomitant]
     Active Substance: POTASSIUM CHLORIDE
     Dosage: 40 MILLIEQUIVALENT PER GRAM, ONCE A DAY
     Route: 065
     Dates: start: 20170721, end: 20170724

REACTIONS (6)
  - Infectious pleural effusion [Unknown]
  - Drug ineffective [Unknown]
  - Klebsiella infection [Unknown]
  - Haemoptysis [Unknown]
  - Pyrexia [Unknown]
  - Chest pain [Unknown]
